FAERS Safety Report 4946105-8 (Version None)
Quarter: 2006Q1

REPORT INFORMATION
  Report Type: 
  Country: None (occurrence: None)
  Receive Date: 20060118
  Receipt Date: 20041118
  Transmission Date: 20060701
  Serious: Yes (Other)
  Sender: FDA-Public Use
  Company Number: BDI-006695

PATIENT
  Age: 69 Year
  Sex: Female
  Weight: 62 kg

DRUGS (2)
  1. PROHANCE [Suspect]
     Indication: HEADACHE
     Dosage: 12 ML ONCE IV
     Route: 042
     Dates: start: 20040808, end: 20040808
  2. PROHANCE [Suspect]
     Indication: NUCLEAR MAGNETIC RESONANCE IMAGING BRAIN
     Dosage: 12 ML ONCE IV
     Route: 042
     Dates: start: 20040808, end: 20040808

REACTIONS (5)
  - CHEST PAIN [None]
  - DYSPNOEA [None]
  - GLOSSODYNIA [None]
  - MALAISE [None]
  - UPPER RESPIRATORY TRACT CONGESTION [None]
